FAERS Safety Report 14775030 (Version 1)
Quarter: 2018Q2

REPORT INFORMATION
  Report Type: Spontaneous
  Country: FR (occurrence: FR)
  Receive Date: 20180418
  Receipt Date: 20180418
  Transmission Date: 20180711
  Serious: Yes (Other)
  Sender: FDA-Public Use
  Company Number: FR-MERCK KGAA-2045948

PATIENT
  Sex: Female

DRUGS (1)
  1. NOVOTHYROX [Suspect]
     Active Substance: LEVOTHYROXINE SODIUM
     Indication: PRODUCT USED FOR UNKNOWN INDICATION

REACTIONS (14)
  - Migraine [None]
  - Visual impairment [None]
  - Eye disorder [None]
  - Depression [None]
  - Decreased interest [None]
  - Pain in extremity [None]
  - Fatigue [None]
  - Myocardial infarction [None]
  - Asthenia [None]
  - Loss of personal independence in daily activities [None]
  - Insomnia [None]
  - Muscle spasms [None]
  - Social avoidant behaviour [None]
  - Somnolence [None]
